FAERS Safety Report 7232741-5 (Version None)
Quarter: 2011Q1

REPORT INFORMATION
  Report Type: 
  Country: None (occurrence: None)
  Receive Date: 20110104
  Receipt Date: 20101230
  Transmission Date: 20110831
  Serious: Yes (Hospitalization)
  Sender: FDA-Public Use
  Company Number: 2011SP000013

PATIENT
  Age: 16 Year
  Sex: Female

DRUGS (13)
  1. RIFINAH (RIFINAH) [Suspect]
     Indication: LYMPHOGRANULOMA VENEREUM
     Dosage: PO
     Route: 048
     Dates: start: 20100909, end: 20101217
  2. RIFATER [Suspect]
     Indication: LYMPHOGRANULOMA VENEREUM
     Dosage: PO
     Route: 048
     Dates: start: 20100630, end: 20100830
  3. SOLUPRED [Concomitant]
  4. SYMBICORT [Concomitant]
  5. VENTOLIN [Concomitant]
  6. PYOSTACINE [Concomitant]
  7. IBUPROFEN [Suspect]
     Indication: PRODUCT USED FOR UNKNOWN INDICATION
     Dosage: PO
     Route: 048
     Dates: start: 20101117, end: 20101122
  8. PREDNISONE [Suspect]
     Indication: ASTHMA
     Dosage: 60 MG;QD;PO, 40 MG;QD;PO, 20 MG;QD;PO
     Route: 048
     Dates: start: 20101213, end: 20101213
  9. PREDNISONE [Suspect]
     Indication: ASTHMA
     Dosage: 60 MG;QD;PO, 40 MG;QD;PO, 20 MG;QD;PO
     Route: 048
     Dates: start: 20101214, end: 20101215
  10. PREDNISONE [Suspect]
     Indication: ASTHMA
     Dosage: 60 MG;QD;PO, 40 MG;QD;PO, 20 MG;QD;PO
     Route: 048
     Dates: start: 20101216, end: 20101218
  11. ACETAMINOPHEN [Suspect]
     Indication: PRODUCT USED FOR UNKNOWN INDICATION
     Dosage: PO
     Route: 048
  12. AUGMENTIN '125' [Concomitant]
  13. CLARITIN [Suspect]
     Indication: ASTHMA
     Dosage: 1 DF;QD;PO
     Route: 048
     Dates: start: 20101213

REACTIONS (17)
  - CONNECTIVE TISSUE DISORDER [None]
  - RHINITIS [None]
  - ASTHMA [None]
  - SUPERINFECTION [None]
  - MYALGIA [None]
  - PAIN [None]
  - SARCOIDOSIS [None]
  - ATYPICAL MYCOBACTERIUM TEST POSITIVE [None]
  - ANTIBIOTIC RESISTANT STAPHYLOCOCCUS TEST POSITIVE [None]
  - NEUTROPENIA [None]
  - HEADACHE [None]
  - VASCULITIS [None]
  - AGRANULOCYTOSIS [None]
  - BRONCHITIS [None]
  - PERIPHERAL VASCULAR DISORDER [None]
  - GRANULOMA [None]
  - LYMPHADENOPATHY [None]
